FAERS Safety Report 8543752-1 (Version None)
Quarter: 2012Q3

REPORT INFORMATION
  Report Type: 
  Country: None (occurrence: None)
  Receive Date: 20120717
  Receipt Date: 20120702
  Transmission Date: 20120928
  Serious: Yes (Hospitalization, Other)
  Sender: FDA-Public Use
  Company Number: JPI-P-015939

PATIENT
  Age: 68 Year
  Sex: Female
  Weight: 61.5 kg

DRUGS (40)
  1. METOCLOPRAMIDE [Concomitant]
  2. PROCHLORPERAZINE [Concomitant]
  3. GLYBURIDE AND METFORMIN HCL [Concomitant]
  4. ALPRAZOLAM [Concomitant]
  5. BENZONATATE [Concomitant]
  6. CALCIFEROL (VITAMIN D) [Concomitant]
  7. AZITHROMYCIN [Suspect]
     Indication: PRODUCT USED FOR UNKNOWN INDICATION
     Dosage: 500 MG (500 MG, 1 IN 1 D), 250 MG (250 MG, 1 IN 1 D)
  8. MODAFINIL [Concomitant]
  9. DIMETHYLGLYCINE (DMG) [Concomitant]
  10. APPLE CIDER VINGER [Concomitant]
  11. PAROXETINE HCL [Concomitant]
  12. MELATONIN [Concomitant]
  13. DEHYDROEPIANDROSTERONE (DHEA) [Concomitant]
  14. TOCOPHEROL (VITAMINE E) [Concomitant]
  15. HYDROCHLOROTHIAZIDE W/OLMESARTAN MEDOXOMIL (BENICAR HCT) [Concomitant]
  16. POST PLATINUM, MAGNESIUM SULFATE, MANNITOL [Concomitant]
  17. METOPROLOL SUCCINATE [Concomitant]
  18. ASCORBIC ACID [Concomitant]
  19. NALTREXONE HYDROCHLORIDE [Concomitant]
  20. NIACIN [Concomitant]
  21. FISH OIL [Concomitant]
  22. DEXAMETHASONE [Concomitant]
  23. ONDANSETRON [Concomitant]
  24. IODINE [Concomitant]
  25. BENFOTIAMINE [Concomitant]
  26. THIAMINE (VITAMIN B1) [Concomitant]
  27. GEMCITABINE [Concomitant]
  28. CISPLATIN W/MANNITOL [Concomitant]
  29. IRVINGIA [Concomitant]
  30. PALONOSETRON HYDROCHLORIDE [Concomitant]
  31. FOSAPREPITANT DIMEGLUMINE [Concomitant]
  32. XYREM [Suspect]
     Indication: CATAPLEXY
     Dosage: 4.5 GM (2.25 GM, 2 IN 1 D), ORAL; UNK DOSE, ORAL; 6 GM (3 GM, 2 IN 1 D), ORAL
     Route: 048
     Dates: start: 20030213, end: 20030101
  33. XYREM [Suspect]
     Indication: SOMNOLENCE
     Dosage: 4.5 GM (2.25 GM, 2 IN 1 D), ORAL; UNK DOSE, ORAL; 6 GM (3 GM, 2 IN 1 D), ORAL
     Route: 048
     Dates: start: 20030213, end: 20030101
  34. XYREM [Suspect]
     Indication: CATAPLEXY
     Dosage: 4.5 GM (2.25 GM, 2 IN 1 D), ORAL; UNK DOSE, ORAL; 6 GM (3 GM, 2 IN 1 D), ORAL
     Route: 048
     Dates: start: 20030527
  35. XYREM [Suspect]
     Indication: SOMNOLENCE
     Dosage: 4.5 GM (2.25 GM, 2 IN 1 D), ORAL; UNK DOSE, ORAL; 6 GM (3 GM, 2 IN 1 D), ORAL
     Route: 048
     Dates: start: 20030527
  36. XYREM [Suspect]
     Indication: CATAPLEXY
     Dosage: 4.5 GM (2.25 GM, 2 IN 1 D), ORAL; UNK DOSE, ORAL; 6 GM (3 GM, 2 IN 1 D), ORAL
     Route: 048
     Dates: start: 20030101, end: 20030101
  37. XYREM [Suspect]
     Indication: SOMNOLENCE
     Dosage: 4.5 GM (2.25 GM, 2 IN 1 D), ORAL; UNK DOSE, ORAL; 6 GM (3 GM, 2 IN 1 D), ORAL
     Route: 048
     Dates: start: 20030101, end: 20030101
  38. UNSPECIFIED CHEMOTHERAPY [Suspect]
     Indication: BLADDER CANCER
     Dosage: UNK
     Dates: start: 20120625
  39. AMLODIPINE BESYLATE AND BENAZEPRIL HCL [Concomitant]
  40. FAMOTIDINE [Concomitant]

REACTIONS (9)
  - NASOPHARYNGITIS [None]
  - BLADDER CANCER [None]
  - METASTASES TO LYMPH NODES [None]
  - MYOCARDIAL INFARCTION [None]
  - NASAL CONGESTION [None]
  - CONDITION AGGRAVATED [None]
  - UPPER-AIRWAY COUGH SYNDROME [None]
  - CATAPLEXY [None]
  - BLOOD PRESSURE INCREASED [None]
